FAERS Safety Report 9920230 (Version 2)
Quarter: 2014Q1

REPORT INFORMATION
  Report Type: Spontaneous
  Country: US (occurrence: US)
  Receive Date: 20140224
  Receipt Date: 20140327
  Transmission Date: 20141002
  Serious: No
  Sender: FDA-Public Use
  Company Number: US-GILEAD-2014-0094750

PATIENT
  Age: 52 Year
  Sex: Male
  Weight: 105.67 kg

DRUGS (7)
  1. SOVALDI [Suspect]
     Indication: CHRONIC HEPATITIS C
     Dosage: 400 MG, QD
     Route: 065
     Dates: start: 20140203
  2. RIBAVIRIN [Concomitant]
     Indication: HEPATITIS C
     Dosage: UNK
     Route: 065
  3. ALBUTEROL                          /00139501/ [Concomitant]
     Dosage: UNK
  4. VITAMIN B COMPLEX [Concomitant]
     Dosage: UNK
  5. GLUCOSAMINE CHONDROITIN COMPLEX    /06278301/ [Concomitant]
     Dosage: UNK
  6. VITAMIN C                          /00008001/ [Concomitant]
     Dosage: UNK
  7. OMEGA 3                            /01333901/ [Concomitant]

REACTIONS (1)
  - Chromaturia [Unknown]
